FAERS Safety Report 13764738 (Version 1)
Quarter: 2017Q3

REPORT INFORMATION
  Report Type: Spontaneous
  Country: US (occurrence: US)
  Receive Date: 20170718
  Receipt Date: 20170718
  Transmission Date: 20171127
  Serious: Yes (Hospitalization)
  Sender: FDA-Public Use
  Company Number: US-NOVOPROD-539162

PATIENT
  Age: 46 Year
  Sex: Male
  Weight: 81.63 kg

DRUGS (1)
  1. TRESIBA [Suspect]
     Active Substance: INSULIN DEGLUDEC
     Indication: DIABETES MELLITUS
     Dosage: 36 UNITS QD
     Route: 058

REACTIONS (1)
  - Blood glucose decreased [Recovered/Resolved]
